FAERS Safety Report 11504581 (Version 1)
Quarter: 2015Q3

REPORT INFORMATION
  Report Type: Spontaneous
  Country: US (occurrence: US)
  Receive Date: 20150915
  Receipt Date: 20150915
  Transmission Date: 20151125
  Serious: No
  Sender: FDA-Public Use
  Company Number: US-ROCHE-800007

PATIENT
  Sex: Female
  Weight: 64.7 kg

DRUGS (3)
  1. LOW MOLECULAR WEIGHT HEPARINS [Concomitant]
     Route: 065
  2. ASPIRIN. [Concomitant]
     Active Substance: ASPIRIN
     Route: 065
  3. PEGASYS [Suspect]
     Active Substance: PEGINTERFERON ALFA-2A
     Indication: MYELOPROLIFERATIVE DISORDER
     Route: 058

REACTIONS (4)
  - Pleurisy [Unknown]
  - White blood cell count decreased [Unknown]
  - Pruritus [Unknown]
  - Platelet count decreased [Unknown]
